FAERS Safety Report 12320726 (Version 1)
Quarter: 2016Q2

REPORT INFORMATION
  Report Type: Spontaneous
  Country: US (occurrence: US)
  Receive Date: 20160429
  Receipt Date: 20160429
  Transmission Date: 20160815
  Serious: Yes (Other)
  Sender: FDA-Public Use
  Company Number: US-ROCHE-1062390

PATIENT
  Sex: Female

DRUGS (1)
  1. AVASTIN [Suspect]
     Active Substance: BEVACIZUMAB
     Indication: PRODUCT USED FOR UNKNOWN INDICATION
     Route: 065

REACTIONS (14)
  - Dry skin [Unknown]
  - Thrombosis [Unknown]
  - Constipation [Unknown]
  - Confusional state [Unknown]
  - Vomiting [Unknown]
  - Blindness [Unknown]
  - Headache [Unknown]
  - Inflammation [Unknown]
  - Pyrexia [Unknown]
  - Nervousness [Unknown]
  - Back pain [Unknown]
  - Dysgeusia [Unknown]
  - Feeling of body temperature change [Unknown]
  - Chest pain [Unknown]
